FAERS Safety Report 4522028-3 (Version None)
Quarter: 2004Q4

REPORT INFORMATION
  Report Type: 
  Country: None (occurrence: None)
  Receive Date: 20041206
  Receipt Date: 20041118
  Transmission Date: 20050328
  Serious: Yes (Hospitalization, Other)
  Sender: FDA-Public Use
  Company Number: 203182

PATIENT
  Sex: Female

DRUGS (16)
  1. AVONEX [Suspect]
     Indication: MULTIPLE SCLEROSIS
     Dosage: 30 UG; QW; IM
     Route: 030
     Dates: start: 19990601
  2. AVONEX [Suspect]
     Indication: MULTIPLE SCLEROSIS
     Dosage: IM
     Route: 030
  3. LOPRESSOR [Concomitant]
  4. LASIX [Concomitant]
  5. ALLEGRA [Concomitant]
  6. NEURONTIN [Concomitant]
  7. SOMA [Concomitant]
  8. POTASSIUM [Concomitant]
  9. DEPAKOTE ER [Concomitant]
  10. VICODIN [Concomitant]
  11. CELEBREX [Concomitant]
  12. VALIUM [Concomitant]
  13. MS CONTIN [Concomitant]
  14. LIPITOR [Concomitant]
  15. PLAVIX [Concomitant]
  16. SYNTHROID [Concomitant]

REACTIONS (1)
  - PULMONARY EMBOLISM [None]
